FAERS Safety Report 10756715 (Version 2)
Quarter: 2015Q1

REPORT INFORMATION
  Report Type: Spontaneous
  Country: US (occurrence: US)
  Receive Date: 20150202
  Receipt Date: 20150223
  Transmission Date: 20150721
  Serious: Yes (Other)
  Sender: FDA-Public Use
  Company Number: US-ASTELLAS-2015US001971

PATIENT
  Age: 51 Year
  Sex: Male

DRUGS (1)
  1. PROTOPIC [Suspect]
     Active Substance: TACROLIMUS
     Indication: ECZEMA
     Dosage: 0.1 %, UNKNOWN FREQ.
     Route: 065
     Dates: start: 2006

REACTIONS (1)
  - Chronic lymphocytic leukaemia [Unknown]
